FAERS Safety Report 6653198-9 (Version None)
Quarter: 2010Q1

REPORT INFORMATION
  Report Type: 
  Country: None (occurrence: None)
  Receive Date: 20100326
  Receipt Date: 20100315
  Transmission Date: 20100710
  Serious: Yes (Death, Hospitalization, Other)
  Sender: FDA-Public Use
  Company Number: FR-BRISTOL-MYERS SQUIBB COMPANY-15031610

PATIENT
  Age: 96 Year
  Sex: Female

DRUGS (6)
  1. CYCLOPHOSPHAMIDE [Suspect]
     Indication: B-CELL LYMPHOMA
     Dosage: EVERY 3 TO 4 WEEKS
  2. DOXORUBICIN HCL [Suspect]
     Indication: B-CELL LYMPHOMA
     Dosage: EVERY 3 TO 4 WEEKS
  3. VINCRISTINE SULFATE [Suspect]
     Indication: B-CELL LYMPHOMA
     Dosage: EVERY 3 TO 4 WEEKS
  4. RITUXIMAB [Suspect]
     Indication: B-CELL LYMPHOMA
     Dosage: FOR 5 DAYS; EVERY 3 TO 4 WEEKS
  5. PREDNISONE TAB [Suspect]
     Indication: B-CELL LYMPHOMA
     Dosage: FOR 5 DAYS; EVERY 3 TO 4 WEEKS
  6. PEGFILGRASTIM [Concomitant]
     Indication: PROPHYLAXIS

REACTIONS (4)
  - EXTRAVASATION [None]
  - LUNG DISORDER [None]
  - MYOCARDIAL INFARCTION [None]
  - PAROTITIS [None]
